FAERS Safety Report 12381402 (Version 1)
Quarter: 2016Q2

REPORT INFORMATION
  Report Type: Spontaneous
  Country: US (occurrence: None)
  Receive Date: 20160517
  Receipt Date: 20160517
  Transmission Date: 20160815
  Serious: Yes (Hospitalization)
  Sender: FDA-Public Use
  Company Number: None

PATIENT
  Age: 70 Year
  Sex: Female
  Weight: 78.2 kg

DRUGS (1)
  1. MEMANTINE HYDROCHLORIDE. [Suspect]
     Active Substance: MEMANTINE HYDROCHLORIDE
     Dates: end: 20160503

REACTIONS (9)
  - Vomiting [None]
  - Dehydration [None]
  - Pneumonia [None]
  - Inappropriate antidiuretic hormone secretion [None]
  - Hyponatraemia [None]
  - Nausea [None]
  - Malaise [None]
  - Pulmonary embolism [None]
  - Asthenia [None]

NARRATIVE: CASE EVENT DATE: 20160425
